FAERS Safety Report 5015160-1 (Version None)
Quarter: 2006Q2

REPORT INFORMATION
  Report Type: 
  Country: None (occurrence: None)
  Receive Date: 20060530
  Receipt Date: 20060518
  Transmission Date: 20061013
  Serious: Yes (Death, Hospitalization)
  Sender: FDA-Public Use
  Company Number: 2006-05-1418

PATIENT
  Age: 54 Year
  Sex: Female
  Weight: 48 kg

DRUGS (1)
  1. VIRAFERONPEG [Suspect]
     Indication: HEPATITIS C
     Dosage: 3 MIU TIW SUBCUTANEOUS
     Route: 058
     Dates: start: 20050921, end: 20060228

REACTIONS (12)
  - CARDIO-RESPIRATORY ARREST [None]
  - CEREBRAL ISCHAEMIA [None]
  - DRUG INTOLERANCE [None]
  - EJECTION FRACTION DECREASED [None]
  - GENERAL PHYSICAL HEALTH DETERIORATION [None]
  - LEUKOPENIA [None]
  - LUNG DISORDER [None]
  - PULMONARY HYPERTENSION [None]
  - THROMBOCYTOPENIA [None]
  - VENTRICULAR DYSFUNCTION [None]
  - VENTRICULAR HYPOKINESIA [None]
  - WEIGHT DECREASED [None]
